FAERS Safety Report 7814452-8 (Version None)
Quarter: 2011Q4

REPORT INFORMATION
  Report Type: 
  Country: None (occurrence: None)
  Receive Date: 20111014
  Receipt Date: 20110930
  Transmission Date: 20120403
  Serious: Yes (Life-Threatening, Hospitalization)
  Sender: FDA-Public Use
  Company Number: AT-ELI_LILLY_AND_COMPANY-AT201110000490

PATIENT
  Age: 41 Year
  Sex: Female

DRUGS (19)
  1. TRAZODONE HCL [Concomitant]
     Dosage: 150 MG, UNK
     Dates: start: 20110211
  2. OXAZEPAM [Concomitant]
     Dosage: 7.5 MG, UNK
     Dates: start: 20110322, end: 20110404
  3. DAFLON                             /00426001/ [Concomitant]
  4. VENLAFAXINE HCL [Concomitant]
     Dosage: 75 MG, UNK
     Dates: start: 20100101, end: 20110209
  5. TIZANIDINE HCL [Concomitant]
     Dosage: 2 MG, UNK
     Dates: start: 20110210, end: 20110211
  6. AEROMUC [Concomitant]
     Dosage: 600 MG, UNK
     Dates: start: 20100101, end: 20110320
  7. OXAZEPAM [Concomitant]
     Dosage: 22.5 MG, UNK
     Dates: start: 20110302, end: 20110313
  8. ZYPREXA [Suspect]
     Dosage: 10 MG, UNKNOWN
     Route: 065
     Dates: start: 20110214, end: 20110309
  9. VENLAFAXINE HCL [Concomitant]
     Dosage: 150 MG, UNK
     Dates: start: 20110210
  10. PARKEMED [Concomitant]
     Dosage: 2000 MG, UNK
     Dates: start: 20090101, end: 20110209
  11. TRAZODONE HCL [Concomitant]
     Dosage: 250 MG, UNK
     Dates: start: 20100101, end: 20110210
  12. NEXIUM [Concomitant]
     Dosage: 40 MG, UNK
     Dates: start: 20090101
  13. OXAZEPAM [Concomitant]
     Dosage: 30 MG, UNK
     Dates: start: 20110210, end: 20110301
  14. TRAMADOL HYDROCHLORIDE [Concomitant]
  15. ZYPREXA [Suspect]
     Dosage: 2.5 MG, UNKNOWN
     Route: 065
     Dates: start: 20110210, end: 20110213
  16. ATROVENT [Concomitant]
     Dosage: 2 DF, UNK
     Dates: start: 20090101
  17. TIZANIDINE HCL [Concomitant]
     Dosage: 4 MG, UNK
     Dates: start: 20100101, end: 20110209
  18. FLUTICASONE PROPIONATE/SALMETEROL [Concomitant]
     Dosage: 2 DF, UNK
     Dates: start: 20100101
  19. OXAZEPAM [Concomitant]
     Dosage: 15 MG, UNK
     Dates: start: 20110314, end: 20110321

REACTIONS (2)
  - UTERINE LEIOMYOMA [None]
  - PROLACTINOMA [None]
